FAERS Safety Report 17356472 (Version 1)
Quarter: 2020Q1

REPORT INFORMATION
  Report Type: Spontaneous
  Country: SE (occurrence: SE)
  Receive Date: 20200131
  Receipt Date: 20200131
  Transmission Date: 20200409
  Serious: Yes (Hospitalization)
  Sender: FDA-Public Use
  Company Number: SE-MYLANLABS-2020M1010978

PATIENT
  Age: 28 Year
  Sex: Female
  Weight: 65.5 kg

DRUGS (4)
  1. RISPERDAL [Suspect]
     Active Substance: RISPERIDONE
     Indication: PRODUCT USED FOR UNKNOWN INDICATION
     Dosage: 6 ST ? 2 MG
     Route: 048
     Dates: start: 20181005, end: 20181005
  2. SERTRALINE [Suspect]
     Active Substance: SERTRALINE HYDROCHLORIDE
     Indication: PRODUCT USED FOR UNKNOWN INDICATION
     Dosage: 4 ST ? 100 MG
     Route: 048
     Dates: start: 20181005, end: 20181005
  3. ZOPICLONE [Suspect]
     Active Substance: ZOPICLONE
     Indication: PRODUCT USED FOR UNKNOWN INDICATION
     Dosage: 4 ST ? 7,5 MG
     Route: 048
     Dates: start: 20181005, end: 20181005
  4. PANODIL [Suspect]
     Active Substance: ACETAMINOPHEN
     Indication: PRODUCT USED FOR UNKNOWN INDICATION
     Dosage: 18 ST, 137 MG/KG
     Route: 048
     Dates: start: 20181005, end: 20181005

REACTIONS (7)
  - Intentional self-injury [Unknown]
  - Akathisia [Unknown]
  - Tachycardia [Unknown]
  - Dysarthria [Unknown]
  - Fatigue [Unknown]
  - Electrocardiogram QT prolonged [Unknown]
  - Intentional overdose [Unknown]

NARRATIVE: CASE EVENT DATE: 20181005
